FAERS Safety Report 4845476-0 (Version None)
Quarter: 2005Q4

REPORT INFORMATION
  Report Type: 
  Country: None (occurrence: None)
  Receive Date: 20051201
  Receipt Date: 20051114
  Transmission Date: 20060501
  Serious: Yes (Other)
  Sender: FDA-Public Use
  Company Number: US200511000334

PATIENT
  Sex: Male

DRUGS (1)
  1. HUMULIN N [Suspect]

REACTIONS (1)
  - DIABETIC COMA [None]
